FAERS Safety Report 4681239-7 (Version None)
Quarter: 2005Q2

REPORT INFORMATION
  Report Type: 
  Country: None (occurrence: None)
  Receive Date: 20050603
  Receipt Date: 20050601
  Transmission Date: 20051028
  Serious: Yes (Death)
  Sender: FDA-Public Use
  Company Number: US-JNJFOC-20050204261

PATIENT
  Age: 53 Year
  Sex: Male

DRUGS (2)
  1. DURAGESIC-100 [Suspect]
     Indication: CANCER PAIN
     Route: 062
     Dates: start: 20041101, end: 20041201
  2. HYDROCODONE [Concomitant]

REACTIONS (2)
  - DEATH [None]
  - FAECALOMA [None]
